FAERS Safety Report 11118679 (Version 2)
Quarter: 2015Q3

REPORT INFORMATION
  Report Type: Spontaneous
  Country: US (occurrence: US)
  Receive Date: 20150518
  Receipt Date: 20150713
  Transmission Date: 20151125
  Serious: No
  Sender: FDA-Public Use
  Company Number: US-009507513-1504USA022249

PATIENT
  Sex: Female
  Weight: 75.74 kg

DRUGS (1)
  1. NEXPLANON [Suspect]
     Active Substance: ETONOGESTREL
     Indication: CONTRACEPTION
     Dosage: 68 MG/ 1 ROD, INSERTED EVERY THREE YEARS
     Route: 059
     Dates: start: 20150311

REACTIONS (1)
  - Oligomenorrhoea [Not Recovered/Not Resolved]
